FAERS Safety Report 9016827 (Version 1)
Quarter: 2013Q1

REPORT INFORMATION
  Report Type: Spontaneous
  Country: FR (occurrence: FR)
  Receive Date: 20130117
  Receipt Date: 20130117
  Transmission Date: 20140127
  Serious: Yes (Life-Threatening)
  Sender: FDA-Public Use
  Company Number: FR-ELI_LILLY_AND_COMPANY-FR201301002725

PATIENT
  Sex: Female

DRUGS (10)
  1. CYMBALTA [Suspect]
     Dosage: UNK
     Route: 048
     Dates: start: 20121018
  2. BACLOFENE IREX [Concomitant]
     Indication: ALCOHOLISM
  3. GLUCOPHAGE [Concomitant]
     Indication: DIABETES MELLITUS
     Dosage: UNK
     Dates: start: 20121018
  4. BROMAZEPAM [Concomitant]
  5. INSULIN [Concomitant]
  6. PLAVIX [Concomitant]
     Dosage: UNK
  7. SECTRAL [Concomitant]
  8. KARDEGIC [Concomitant]
  9. PARIET [Concomitant]
  10. LASILIX [Concomitant]

REACTIONS (1)
  - Cardiogenic shock [Recovered/Resolved]
